FAERS Safety Report 9524280 (Version 1)
Quarter: 2013Q3

REPORT INFORMATION
  Report Type: Spontaneous
  Country: US (occurrence: US)
  Receive Date: 20130916
  Receipt Date: 20130916
  Transmission Date: 20140515
  Serious: No
  Sender: FDA-Public Use
  Company Number: US-JNJFOC-20130901815

PATIENT
  Sex: Female
  Weight: 54.43 kg

DRUGS (3)
  1. SANDOZ FENTANYL TRANSDERMAL SYSTEM [Suspect]
     Indication: PAIN
     Route: 062
     Dates: start: 201307
  2. IRON PLUS VITAMINS [Concomitant]
     Indication: ANAEMIA
     Route: 048
     Dates: start: 201308
  3. BLACK COHOSH [Concomitant]
     Indication: MENOPAUSE
     Route: 048
     Dates: start: 2013

REACTIONS (4)
  - Wrong technique in drug usage process [Not Recovered/Not Resolved]
  - Product adhesion issue [Unknown]
  - Pain [Not Recovered/Not Resolved]
  - Wrong technique in drug usage process [Recovered/Resolved]
